FAERS Safety Report 8977359 (Version 2)
Quarter: 2013Q1

REPORT INFORMATION
  Report Type: Spontaneous
  Country: NO (occurrence: NO)
  Receive Date: 20121220
  Receipt Date: 20130102
  Transmission Date: 20140127
  Serious: Yes (Hospitalization, Disabling)
  Sender: FDA-Public Use
  Company Number: NO-PFIZER INC-2012322509

PATIENT
  Age: 58 Year
  Sex: Male
  Weight: 82 kg

DRUGS (10)
  1. NORVASC [Suspect]
     Indication: BLOOD CHOLESTEROL
     Dosage: 40 MG, 1X/DAY
     Dates: start: 19931223
  2. SELOZOK [Suspect]
     Indication: MYOCARDIAL ISCHAEMIA
     Dosage: 150 MG, 1X/DAY
     Dates: start: 19931223
  3. EZETROL [Concomitant]
     Dates: start: 20070617
  4. CARVEDILOL HEXAL [Concomitant]
     Dates: start: 20050420
  5. ALBYL-E [Concomitant]
     Dates: start: 19931223
  6. IMDUR [Concomitant]
     Dates: start: 19931223
  7. TRAMAGETIC OD [Concomitant]
  8. CRESTOR [Concomitant]
  9. OMACOR [Concomitant]
     Dates: start: 19931222
  10. ACETYLSALICYLIC ACID [Concomitant]

REACTIONS (3)
  - Myalgia [Not Recovered/Not Resolved]
  - Chronic obstructive pulmonary disease [Not Recovered/Not Resolved]
  - Arthralgia [Not Recovered/Not Resolved]
